FAERS Safety Report 17420797 (Version 3)
Quarter: 2020Q3

REPORT INFORMATION
  Report Type: Spontaneous
  Country: US (occurrence: US)
  Receive Date: 20200214
  Receipt Date: 20200828
  Transmission Date: 20201102
  Serious: Yes (Other)
  Sender: FDA-Public Use
  Company Number: US-TEVA-2020-US-1183541

PATIENT
  Age: 70 Year
  Sex: Male

DRUGS (3)
  1. OXYCODONE [Suspect]
     Active Substance: OXYCODONE
     Route: 065
     Dates: start: 2016
  2. OXYCODONE [Suspect]
     Active Substance: OXYCODONE
     Route: 065
     Dates: start: 2010
  3. HYDROMORPHONE [Suspect]
     Active Substance: HYDROMORPHONE
     Dates: start: 2016

REACTIONS (3)
  - Dementia Alzheimer^s type [Unknown]
  - Memory impairment [Unknown]
  - Dementia [Unknown]

NARRATIVE: CASE EVENT DATE: 2018
